FAERS Safety Report 10537562 (Version 1)
Quarter: 2014Q4

REPORT INFORMATION
  Report Type: Spontaneous
  Country: JP (occurrence: None)
  Receive Date: 20141021
  Receipt Date: 20141021
  Transmission Date: 20150529
  Serious: Yes (Death, Hospitalization)
  Sender: FDA-Public Use
  Company Number: COR_00108_2014

PATIENT
  Age: 72 Year
  Sex: Male

DRUGS (2)
  1. ETOPOSIDE. [Suspect]
     Active Substance: ETOPOSIDE
     Indication: SMALL CELL LUNG CANCER
     Dosage: (ON DAYS 1 AND 3, 4 CYCLES) (DOSE REDUCTION FOR FUTHER COURSES, DF)
  2. CARBOPLATIN. [Suspect]
     Active Substance: CARBOPLATIN
     Indication: SMALL CELL LUNG CANCER
     Dosage: (ON DAY 1, 4 CYCLES) DOSE REDUCTION FOR FUTHER COURSES, DF

REACTIONS (5)
  - Thrombocytopenia [None]
  - Pneumonia [None]
  - Muscular weakness [None]
  - Febrile neutropenia [None]
  - Hypotension [None]
